FAERS Safety Report 7597119-3 (Version None)
Quarter: 2011Q3

REPORT INFORMATION
  Report Type: 
  Country: None (occurrence: None)
  Receive Date: 20110708
  Receipt Date: 20110706
  Transmission Date: 20111222
  Serious: Yes (Other)
  Sender: FDA-Public Use
  Company Number: US-PFIZER INC-2011152413

PATIENT
  Sex: Female
  Weight: 99.78 kg

DRUGS (4)
  1. DILANTIN [Suspect]
     Dosage: 100 MG, 3X/DAY
     Route: 048
  2. PHENYTOIN [Suspect]
     Dosage: 100 MG, 3X/DAY
     Route: 048
  3. ZONEGRAN [Concomitant]
     Indication: CONVULSION
     Dosage: 100MG ONE IN MORNING AND THREE AT NIGHT
  4. DILANTIN [Suspect]
     Indication: CONVULSION
     Dosage: 100 MG, 3X/DAY
     Route: 048
     Dates: start: 19850901

REACTIONS (1)
  - CONVULSION [None]
